FAERS Safety Report 15748097 (Version 1)
Quarter: 2018Q4

REPORT INFORMATION
  Report Type: Spontaneous
  Country: GB (occurrence: GB)
  Receive Date: 20181221
  Receipt Date: 20181221
  Transmission Date: 20190205
  Serious: Yes (Hospitalization, Other)
  Sender: FDA-Public Use
  Company Number: GB-ZYDUS-032064

PATIENT
  Age: 80 Year
  Sex: Female

DRUGS (3)
  1. FONDAPARINUX/FONDAPARINUX SODIUM [Suspect]
     Active Substance: FONDAPARINUX
     Indication: ACUTE MYOCARDIAL INFARCTION
     Route: 065
  2. ACETYLSALICYLIC ACID [Suspect]
     Active Substance: ASPIRIN
     Indication: ANTIPLATELET THERAPY
     Route: 065
  3. CLOPIDOGREL [Suspect]
     Active Substance: CLOPIDOGREL BISULFATE
     Indication: ANTIPLATELET THERAPY
     Route: 065

REACTIONS (9)
  - Splenic rupture [Unknown]
  - Hypotension [Not Recovered/Not Resolved]
  - Chest pain [Unknown]
  - Abdominal pain [Unknown]
  - Flank pain [Unknown]
  - Abdominal tenderness [Unknown]
  - Pleural effusion [Unknown]
  - Haematoma [Unknown]
  - Dyspnoea [Unknown]
